FAERS Safety Report 8497656-3 (Version None)
Quarter: 2012Q3

REPORT INFORMATION
  Report Type: 
  Country: None (occurrence: None)
  Receive Date: 20120709
  Receipt Date: 20120614
  Transmission Date: 20120928
  Serious: No
  Sender: FDA-Public Use
  Company Number: US-AMGEN-USASP2011052283

PATIENT
  Age: 71 Year
  Sex: Female
  Weight: 77.551 kg

DRUGS (2)
  1. ENBREL [Suspect]
     Indication: RHEUMATOID ARTHRITIS
     Dosage: 50 MG, QWK
     Dates: start: 20110801
  2. ENBREL [Suspect]
     Dosage: UNK, QWK
     Route: 058
     Dates: start: 20100607

REACTIONS (2)
  - INJECTION SITE EXTRAVASATION [None]
  - INJECTION SITE PAIN [None]
